FAERS Safety Report 17632226 (Version 1)
Quarter: 2020Q2

REPORT INFORMATION
  Report Type: Spontaneous
  Country: US (occurrence: US)
  Receive Date: 20200403
  Receipt Date: 20200403
  Transmission Date: 20200713
  Serious: Yes (Other)
  Sender: FDA-Public Use
  Company Number: None

PATIENT

DRUGS (1)
  1. MEDROL [Suspect]
     Active Substance: METHYLPREDNISOLONE
     Indication: BACTERIAL INFECTION
     Dosage: ?          OTHER STRENGTH:MEDROL PAK:;QUANTITY:6PILLS DAY 1 AND 2;OTHER FREQUENCY:THEA 4,3,2,1;OTHER ROUTE:FOR 6 TOTAL DAYS?
     Dates: start: 20200212, end: 20200217

REACTIONS (2)
  - Pain in extremity [None]
  - Drug ineffective [None]

NARRATIVE: CASE EVENT DATE: 20200219
